FAERS Safety Report 12677527 (Version 1)
Quarter: 2016Q3

REPORT INFORMATION
  Report Type: Report from Study
  Country: BR (occurrence: BR)
  Receive Date: 20160823
  Receipt Date: 20160823
  Transmission Date: 20161109
  Serious: Yes (Death, Other)
  Sender: FDA-Public Use
  Company Number: BR-JNJFOC-20160603349

PATIENT
  Sex: Female

DRUGS (1)
  1. REMICADE [Suspect]
     Active Substance: INFLIXIMAB
     Indication: RHEUMATOID ARTHRITIS
     Route: 042
     Dates: end: 2015

REACTIONS (6)
  - Drug ineffective [Unknown]
  - Asthenia [Unknown]
  - Infection [Fatal]
  - Osteoporosis [Unknown]
  - Arthritis [Unknown]
  - Osteoarthritis [Unknown]
